FAERS Safety Report 13833578 (Version 4)
Quarter: 2017Q3

REPORT INFORMATION
  Report Type: Spontaneous
  Country: CZ (occurrence: CZ)
  Receive Date: 20170804
  Receipt Date: 20170927
  Transmission Date: 20171127
  Serious: Yes (Death)
  Sender: FDA-Public Use
  Company Number: CZ-NOVOPROD-555742

PATIENT
  Age: 53 Year
  Sex: Male
  Weight: 200 kg

DRUGS (9)
  1. ANOPYRIN [Concomitant]
     Active Substance: ASPIRIN
     Dosage: 100 1-0-0
     Route: 065
  2. TORVACARD [Concomitant]
     Active Substance: ATORVASTATIN CALCIUM
     Dosage: 10 0-0-1
     Route: 065
  3. VEROSPIRON [Concomitant]
     Active Substance: SPIRONOLACTONE
     Dosage: UNK
     Route: 065
  4. CONCOR COR [Concomitant]
     Active Substance: BISOPROLOL FUMARATE
     Dosage: 10 1-0-0
     Route: 065
  5. TRITACE [Concomitant]
     Active Substance: RAMIPRIL
     Dosage: 10 1-0-0
     Route: 065
  6. CORDARONE [Concomitant]
     Active Substance: AMIODARONE HYDROCHLORIDE
     Dosage: 1-0-0
     Route: 065
  7. XULTOPHY 100/3.6 [Suspect]
     Active Substance: INSULIN DEGLUDEC\LIRAGLUTIDE
     Indication: TYPE 2 DIABETES MELLITUS
     Dosage: 16 U, QD
     Route: 058
     Dates: start: 201704
  8. XULTOPHY 100/3.6 [Suspect]
     Active Substance: INSULIN DEGLUDEC\LIRAGLUTIDE
     Dosage: 20 U, QD
     Route: 058
  9. STADAMET [Concomitant]
     Active Substance: METFORMIN HYDROCHLORIDE
     Dosage: 1000 MG, BID (1000 MG 1-0-1)
     Route: 065

REACTIONS (2)
  - Cardiopulmonary failure [Fatal]
  - Drug titration error [Unknown]
